FAERS Safety Report 8617193-2 (Version None)
Quarter: 2012Q3

REPORT INFORMATION
  Report Type: 
  Country: None (occurrence: None)
  Receive Date: 20120823
  Receipt Date: 20120817
  Transmission Date: 20120928
  Serious: Yes (Other)
  Sender: FDA-Public Use
  Company Number: NL-GILEAD-2007-0013247

PATIENT
  Age: 42 Year
  Sex: Male

DRUGS (9)
  1. RITONAVIR [Concomitant]
     Indication: HIV INFECTION
  2. FOSAMPRENAVIR CALCIUM [Concomitant]
     Indication: HIV INFECTION
  3. DELAVIRDINE [Concomitant]
     Indication: HIV INFECTION
  4. DIDANOSINE [Concomitant]
  5. ZALCITABINE [Concomitant]
  6. ZIDOVUDINE [Concomitant]
  7. VIREAD [Suspect]
     Indication: HIV INFECTION
     Dosage: 300 MG, QD
     Dates: start: 20020801, end: 20060101
  8. STAVUDINE [Concomitant]
  9. EPIVIR [Concomitant]
     Indication: HIV INFECTION

REACTIONS (6)
  - OSTEOSCLEROSIS [None]
  - OSTEONECROSIS [None]
  - OSTEOMALACIA [None]
  - PAIN IN EXTREMITY [None]
  - FANCONI SYNDROME ACQUIRED [None]
  - FEMUR FRACTURE [None]
